FAERS Safety Report 8849531 (Version 2)
Quarter: 2012Q4

REPORT INFORMATION
  Report Type: 
  Country: US (occurrence: US)
  Receive Date: 20121019
  Receipt Date: 20121106
  Transmission Date: 20130627
  Serious: Yes (Other)
  Sender: FDA-Public Use
  Company Number: US-TEVA-365144USA

PATIENT
  Age: 58 Year
  Sex: Female
  Weight: 49.94 kg

DRUGS (4)
  1. COPAXONE [Suspect]
     Indication: MULTIPLE SCLEROSIS
     Dosage: 20 Milligram Daily;
     Route: 058
     Dates: start: 20121004, end: 20121012
  2. INFUSION [Concomitant]
     Route: 042
     Dates: start: 20121005, end: 20121007
  3. PANTOPRAZOLE [Concomitant]
     Indication: GASTROINTESTINAL DISORDER
     Dosage: 40 Milligram Daily;
     Route: 048
     Dates: end: 20121011
  4. AZITHROMYCIN [Concomitant]
     Indication: BRONCHITIS
     Dosage: 2 tabs day 1, then 1 tab daily for 4 days
     Route: 048
     Dates: start: 20121013

REACTIONS (19)
  - Dyspnoea [Not Recovered/Not Resolved]
  - Throat tightness [Not Recovered/Not Resolved]
  - Pharyngeal oedema [Not Recovered/Not Resolved]
  - Dysphagia [Not Recovered/Not Resolved]
  - Pyrexia [Recovered/Resolved]
  - Injection site swelling [Not Recovered/Not Resolved]
  - Pain in extremity [Not Recovered/Not Resolved]
  - Gait disturbance [Not Recovered/Not Resolved]
  - Injection site mass [Not Recovered/Not Resolved]
  - Injection site erythema [Not Recovered/Not Resolved]
  - Tremor [Recovered/Resolved]
  - Chills [Recovered/Resolved]
  - Dizziness [Not Recovered/Not Resolved]
  - Bronchitis [Not Recovered/Not Resolved]
  - Injection site pain [Not Recovered/Not Resolved]
  - Injection site induration [Not Recovered/Not Resolved]
  - Injection site urticaria [Not Recovered/Not Resolved]
  - Hypersensitivity [Unknown]
  - Chest discomfort [Unknown]
